FAERS Safety Report 19164316 (Version 2)
Quarter: 2022Q2

REPORT INFORMATION
  Report Type: Spontaneous
  Country: US (occurrence: US)
  Receive Date: 20210421
  Receipt Date: 20220413
  Transmission Date: 20220721
  Serious: No
  Sender: FDA-Public Use
  Company Number: US-PFIZER INC-2021401235

PATIENT
  Age: 57 Year
  Sex: Female

DRUGS (6)
  1. IBRANCE [Suspect]
     Active Substance: PALBOCICLIB
     Indication: Breast cancer female
     Dosage: 125 MG, DAILY (FOR 21 DAYS)
     Route: 048
     Dates: start: 20210324
  2. IBRANCE [Suspect]
     Active Substance: PALBOCICLIB
     Dosage: 100 MG, CYCLIC, 3 WEEKS ON, 1 WEEK OFF
     Route: 048
     Dates: start: 20210324
  3. CITALOPRAM [Concomitant]
     Active Substance: CITALOPRAM HYDROBROMIDE
     Dosage: UNK
  4. ADVIL [Concomitant]
     Active Substance: IBUPROFEN
  5. FASLODEX [Concomitant]
     Active Substance: FULVESTRANT
  6. TYLENOL [Concomitant]
     Active Substance: ACETAMINOPHEN

REACTIONS (5)
  - Dyspepsia [Recovered/Resolved]
  - Fatigue [Unknown]
  - Iron deficiency [Unknown]
  - Blood iron decreased [Unknown]
  - White blood cell count decreased [Unknown]
